FAERS Safety Report 9915541 (Version 1)
Quarter: 2014Q1

REPORT INFORMATION
  Report Type: Spontaneous
  Country: AU (occurrence: AU)
  Receive Date: 20140221
  Receipt Date: 20140221
  Transmission Date: 20141002
  Serious: Yes (Disabling, Other)
  Sender: FDA-Public Use
  Company Number: AU-009507513-1402AUS008779

PATIENT
  Age: 82 Year
  Sex: Female

DRUGS (1)
  1. DRONALEN PLUS 70 MG/140 MCG [Suspect]
     Dosage: UNK, QW
     Route: 048
     Dates: start: 20000101, end: 20131217

REACTIONS (1)
  - Femur fracture [Recovered/Resolved with Sequelae]
